FAERS Safety Report 15665971 (Version 1)
Quarter: 2018Q4

REPORT INFORMATION
  Report Type: Spontaneous
  Country: US (occurrence: US)
  Receive Date: 20181128
  Receipt Date: 20181128
  Transmission Date: 20190205
  Serious: No
  Sender: FDA-Public Use
  Company Number: US-LEXICON PHARMACEUTICALS, INC-18-1606-01386

PATIENT
  Age: 76 Year
  Sex: Female

DRUGS (11)
  1. VITAMIN D [Concomitant]
     Active Substance: CHOLECALCIFEROL
  2. METFORMIN [Concomitant]
     Active Substance: METFORMIN HYDROCHLORIDE
  3. LORATADINE. [Concomitant]
     Active Substance: LORATADINE
  4. ZOFRAN [Concomitant]
     Active Substance: ONDANSETRON HYDROCHLORIDE
  5. JANUVIA [Concomitant]
     Active Substance: SITAGLIPTIN PHOSPHATE
  6. NEXIUM [Concomitant]
     Active Substance: ESOMEPRAZOLE MAGNESIUM
  7. VITAMIN B [Concomitant]
     Active Substance: VITAMIN B
  8. TELOTRISTAT ETHYL [Suspect]
     Active Substance: TELOTRISTAT ETHYL
     Indication: CARCINOID TUMOUR
     Route: 048
     Dates: start: 20180817
  9. MIRALAX [Concomitant]
     Active Substance: POLYETHYLENE GLYCOL 3350
  10. SANDOSTATIN [Concomitant]
     Active Substance: OCTREOTIDE ACETATE
  11. FLORASTOR [Concomitant]
     Active Substance: SACCHAROMYCES CEREVISIAE

REACTIONS (6)
  - Abdominal discomfort [Recovered/Resolved]
  - Off label use [Unknown]
  - Varicose vein [Not Recovered/Not Resolved]
  - Rash macular [Not Recovered/Not Resolved]
  - Nausea [Recovered/Resolved]
  - Oedema peripheral [Not Recovered/Not Resolved]

NARRATIVE: CASE EVENT DATE: 20181023
